FAERS Safety Report 6882875-X (Version None)
Quarter: 2010Q3

REPORT INFORMATION
  Report Type: 
  Country: None (occurrence: None)
  Receive Date: 20100702
  Receipt Date: 20090824
  Transmission Date: 20110219
  Serious: Yes (Other)
  Sender: FDA-Public Use
  Company Number: 2009234381

PATIENT
  Age: 52 Year
  Sex: Female
  Weight: 54.4 kg

DRUGS (3)
  1. ZOLOFT [Suspect]
     Indication: DEPRESSION
     Dosage: 50 MG, 1X/DAY, ORAL
     Route: 048
     Dates: start: 20090505, end: 20090621
  2. ZOLOFT [Suspect]
  3. AMBIEN [Concomitant]

REACTIONS (3)
  - DEPRESSION [None]
  - MUSCLE TWITCHING [None]
  - TREMOR [None]
